FAERS Safety Report 6457597-X (Version None)
Quarter: 2009Q4

REPORT INFORMATION
  Report Type: 
  Country: None (occurrence: None)
  Receive Date: 20091125
  Receipt Date: 20091116
  Transmission Date: 20100525
  Serious: Yes (Hospitalization)
  Sender: FDA-Public Use
  Company Number: AU-JNJFOC-20091107059

PATIENT
  Sex: Female

DRUGS (5)
  1. TRAMAL [Suspect]
     Indication: DRUG USE FOR UNKNOWN INDICATION
     Route: 065
  2. TRAMADOL HCL [Suspect]
     Indication: DRUG USE FOR UNKNOWN INDICATION
     Route: 065
  3. OXYCONTIN [Interacting]
     Indication: DRUG USE FOR UNKNOWN INDICATION
     Route: 065
  4. FLUTICASONE PROPIONATE W/SALMETEROL XINAFOATE [Concomitant]
     Route: 065
  5. ALBUTEROL [Concomitant]
     Route: 065

REACTIONS (4)
  - CHEST PAIN [None]
  - DRUG INTERACTION [None]
  - HEADACHE [None]
  - PHOTOPHOBIA [None]
